FAERS Safety Report 7324400-5 (Version None)
Quarter: 2011Q1

REPORT INFORMATION
  Report Type: 
  Country: None (occurrence: None)
  Receive Date: 20110301
  Receipt Date: 20110223
  Transmission Date: 20110831
  Serious: No
  Sender: FDA-Public Use
  Company Number: US-PFIZER INC-2011039949

PATIENT
  Sex: Male
  Weight: 95.238 kg

DRUGS (2)
  1. IBUPROFEN [Concomitant]
     Indication: PYREXIA
     Dosage: UNK
  2. ZITHROMAX [Suspect]
     Indication: BRONCHITIS
     Dosage: 250 MG, DAILY
     Route: 048

REACTIONS (3)
  - DERMATITIS [None]
  - BLISTER [None]
  - PRURITUS [None]
